FAERS Safety Report 6472687-3 (Version None)
Quarter: 2009Q4

REPORT INFORMATION
  Report Type: 
  Country: None (occurrence: None)
  Receive Date: 20091203
  Receipt Date: 20081211
  Transmission Date: 20100525
  Serious: No
  Sender: FDA-Public Use
  Company Number: US-AMGEN-KDL323614

PATIENT
  Sex: Female

DRUGS (3)
  1. ENBREL [Suspect]
     Indication: POLYMYOSITIS
     Route: 058
  2. ENBREL [Suspect]
     Indication: RHEUMATOID ARTHRITIS
  3. METHOTREXATE [Concomitant]

REACTIONS (1)
  - INJECTION SITE PAIN [None]
